FAERS Safety Report 15003938 (Version 2)
Quarter: 2018Q3

REPORT INFORMATION
  Report Type: Spontaneous
  Country: US (occurrence: US)
  Receive Date: 20180613
  Receipt Date: 20180717
  Transmission Date: 20181010
  Serious: Yes (Hospitalization, Other)
  Sender: FDA-Public Use
  Company Number: US-ROCHE-2137372

PATIENT
  Sex: Female
  Weight: 90.8 kg

DRUGS (1)
  1. OCREVUS [Suspect]
     Active Substance: OCRELIZUMAB
     Indication: SECONDARY PROGRESSIVE MULTIPLE SCLEROSIS
     Dosage: MOST RECENT DOSE OF OCRELIZUMAB RECEIVED ON 05/DEC/2017.
     Route: 065
     Dates: start: 20170621

REACTIONS (8)
  - Sepsis [Unknown]
  - Intestinal perforation [Unknown]
  - Large intestine perforation [Unknown]
  - Off label use [Unknown]
  - Urinary retention [Unknown]
  - Clostridium difficile colitis [Unknown]
  - White blood cell count increased [Unknown]
  - Intentional product use issue [Unknown]

NARRATIVE: CASE EVENT DATE: 2018
